FAERS Safety Report 9462114 (Version 1)
Quarter: 2013Q3

REPORT INFORMATION
  Report Type: Spontaneous
  Country: US (occurrence: None)
  Receive Date: 20130813
  Receipt Date: 20130813
  Transmission Date: 20140515
  Serious: Yes (Other)
  Sender: FDA-Public Use
  Company Number: ACO_35845_2013

PATIENT
  Sex: Female
  Weight: 68 kg

DRUGS (1)
  1. AMPYRA [Suspect]
     Indication: GAIT DISTURBANCE
     Route: 048

REACTIONS (3)
  - Multiple sclerosis relapse [None]
  - Wheelchair user [None]
  - Fall [None]
